FAERS Safety Report 8125502 (Version 3)
Quarter: 2012Q4

REPORT INFORMATION
  Report Type: 
  Country: US (occurrence: US)
  Receive Date: 20110908
  Receipt Date: 20120912
  Transmission Date: 20130627
  Serious: Yes (Other)
  Sender: FDA-Public Use
  Company Number: US-BAYER-2011-018271

PATIENT
  Age: 27 Year
  Sex: Female

DRUGS (1)
  1. MIRENA [Suspect]
     Dosage: 20 ?g/d, UNK
     Route: 015
     Dates: start: 20101026, end: 20120711

REACTIONS (7)
  - Vaginal haemorrhage [None]
  - Menorrhagia [None]
  - Abnormal weight gain [None]
  - Food craving [None]
  - Procedural headache [Not Recovered/Not Resolved]
  - Asthenia [Not Recovered/Not Resolved]
  - Withdrawal syndrome [None]
